FAERS Safety Report 22589045 (Version 1)
Quarter: 2023Q2

REPORT INFORMATION
  Report Type: Report from Study
  Country: US (occurrence: US)
  Receive Date: 20230612
  Receipt Date: 20230612
  Transmission Date: 20230722
  Serious: Yes (Other)
  Sender: FDA-Public Use
  Company Number: US-002147023-NVSC2023US130386

PATIENT
  Sex: Female

DRUGS (1)
  1. COSENTYX [Suspect]
     Active Substance: SECUKINUMAB
     Indication: Product used for unknown indication
     Dosage: UNK
     Route: 065

REACTIONS (9)
  - Transient ischaemic attack [Unknown]
  - Cerebrovascular insufficiency [Unknown]
  - Lower limb fracture [Unknown]
  - Hypotension [Unknown]
  - Haemoglobin decreased [Unknown]
  - Arterial occlusive disease [Unknown]
  - Gait disturbance [Unknown]
  - Palpitations [Unknown]
  - Cardiac disorder [Unknown]
